FAERS Safety Report 17297496 (Version 2)
Quarter: 2020Q1

REPORT INFORMATION
  Report Type: Spontaneous
  Country: FR (occurrence: FR)
  Receive Date: 20200122
  Receipt Date: 20200203
  Transmission Date: 20200409
  Serious: Yes (Hospitalization, Other)
  Sender: FDA-Public Use
  Company Number: FR-AUROBINDO-AUR-APL-2020-003018

PATIENT
  Age: 90 Year
  Sex: Female

DRUGS (1)
  1. AMOXICILLIN ARROW CAPSULE 500MG [Suspect]
     Active Substance: AMOXICILLIN
     Indication: URINARY TRACT INFECTION
     Dosage: UNK
     Route: 048
     Dates: start: 20191224, end: 20191230

REACTIONS (3)
  - Dyspnoea [Recovered/Resolved]
  - Erythema multiforme [Recovering/Resolving]
  - Hypoxia [Recovered/Resolved]

NARRATIVE: CASE EVENT DATE: 20191229
